FAERS Safety Report 4401247-0 (Version None)
Quarter: 2004Q3

REPORT INFORMATION
  Report Type: 
  Country: None (occurrence: None)
  Receive Date: 20040907
  Receipt Date: 20040121
  Transmission Date: 20050211
  Serious: No
  Sender: FDA-Public Use
  Company Number: US-BRISTOL-MYERS SQUIBB COMPANY-12484358

PATIENT
  Age: 69 Year
  Sex: Female
  Weight: 90 kg

DRUGS (4)
  1. COUMADIN [Suspect]
     Indication: ATRIAL FIBRILLATION
     Dosage: DOSAGE: 6MG AND 7MG ALTERNATING DAILY
     Route: 048
  2. MULTIVITAMIN [Concomitant]
  3. CODEINE [Concomitant]
  4. ZOCOR [Concomitant]

REACTIONS (1)
  - ALOPECIA [None]
